FAERS Safety Report 17077740 (Version 2)
Quarter: 2019Q4

REPORT INFORMATION
  Report Type: Spontaneous
  Country: RO (occurrence: RO)
  Receive Date: 20191126
  Receipt Date: 20191128
  Transmission Date: 20200122
  Serious: Yes (Death, Other)
  Sender: FDA-Public Use
  Company Number: RO-AMGEN-ROUSP2019195695

PATIENT

DRUGS (1)
  1. KYPROLIS [Suspect]
     Active Substance: CARFILZOMIB
     Indication: PRODUCT USED FOR UNKNOWN INDICATION
     Dosage: UNK
     Route: 065

REACTIONS (22)
  - Polyneuropathy [Unknown]
  - Nausea [Unknown]
  - Cardiac failure [Unknown]
  - Acute kidney injury [Unknown]
  - Leukopenia [Unknown]
  - Pyrexia [Unknown]
  - Dyspnoea [Unknown]
  - Cough [Unknown]
  - Sepsis [Fatal]
  - Haemorrhage [Fatal]
  - Neutropenia [Unknown]
  - Blood urea increased [Unknown]
  - Diabetic metabolic decompensation [Fatal]
  - Neoplasm [Fatal]
  - Disease progression [Fatal]
  - Angina pectoris [Unknown]
  - Hypertension [Unknown]
  - Anaemia [Unknown]
  - Hypercalcaemia [Unknown]
  - Death [Fatal]
  - Pneumonia [Unknown]
  - Thrombocytopenia [Unknown]
